FAERS Safety Report 5542850-4 (Version None)
Quarter: 2007Q4

REPORT INFORMATION
  Report Type: 
  Country: None (occurrence: None)
  Receive Date: 20071210
  Receipt Date: 20071128
  Transmission Date: 20080405
  Serious: Yes (Other)
  Sender: FDA-Public Use
  Company Number: US-PFIZER INC-2007085845

PATIENT
  Sex: Female
  Weight: 86.2 kg

DRUGS (2)
  1. CHANTIX [Suspect]
     Indication: SMOKING CESSATION THERAPY
     Route: 048
  2. LYRICA [Concomitant]
     Indication: PAIN

REACTIONS (2)
  - GLOSSODYNIA [None]
  - SWOLLEN TONGUE [None]
